FAERS Safety Report 21441680 (Version 2)
Quarter: 2022Q4

REPORT INFORMATION
  Report Type: Report from Study
  Country: US (occurrence: US)
  Receive Date: 20221011
  Receipt Date: 20221017
  Transmission Date: 20230113
  Serious: No
  Sender: FDA-Public Use
  Company Number: US-SA-SAC20221006001075

PATIENT
  Age: 46 Year
  Sex: Male
  Weight: 97.5 kg

DRUGS (1)
  1. DUPILUMAB [Suspect]
     Active Substance: DUPILUMAB
     Indication: Eosinophilic oesophagitis
     Dosage: 300 MG, QW
     Route: 058
     Dates: start: 20220921

REACTIONS (4)
  - Eczema [Recovering/Resolving]
  - Blister [Recovering/Resolving]
  - Headache [Recovered/Resolved]
  - Swelling face [Recovering/Resolving]
